FAERS Safety Report 8041185-8 (Version None)
Quarter: 2012Q1

REPORT INFORMATION
  Report Type: 
  Country: None (occurrence: None)
  Receive Date: 20120112
  Receipt Date: 20120107
  Transmission Date: 20120608
  Serious: Yes (Hospitalization, Other)
  Sender: FDA-Public Use
  Company Number: US-BAYER-2011-102780

PATIENT
  Age: 55 Year
  Sex: Male

DRUGS (3)
  1. NEXAVAR [Suspect]
     Indication: HEPATIC NEOPLASM MALIGNANT
     Dosage: 400 MG, BID
     Route: 048
     Dates: start: 20111007, end: 20111027
  2. NEXAVAR [Suspect]
     Dosage: 200 MG AM AND 400 MG PM
     Dates: start: 20111028, end: 20111128
  3. NEXAVAR [Suspect]
     Dosage: 600 MG, QD
     Route: 048

REACTIONS (8)
  - WEIGHT DECREASED [None]
  - PULMONARY CONGESTION [None]
  - VOMITING [None]
  - HOSPITALISATION [None]
  - NAUSEA [None]
  - BLOOD COUNT ABNORMAL [None]
  - DRUG INEFFECTIVE [None]
  - LEUKOPENIA [None]
